FAERS Safety Report 7657306-2 (Version None)
Quarter: 2011Q3

REPORT INFORMATION
  Report Type: 
  Country: None (occurrence: None)
  Receive Date: 20110804
  Receipt Date: 20110725
  Transmission Date: 20111222
  Serious: Yes (Other)
  Sender: FDA-Public Use
  Company Number: PHEH2009US07511

PATIENT
  Sex: Female

DRUGS (2)
  1. ZOMETA [Suspect]
     Dosage: 4 MG, QMO
     Route: 042
  2. AREDIA [Suspect]

REACTIONS (11)
  - NEOPLASM PROGRESSION [None]
  - METASTASES TO LIVER [None]
  - WEIGHT DECREASED [None]
  - COUGH [None]
  - PAIN [None]
  - GENERAL PHYSICAL HEALTH DETERIORATION [None]
  - ANXIETY [None]
  - OSTEONECROSIS OF JAW [None]
  - DIARRHOEA [None]
  - ANHEDONIA [None]
  - NEOPLASM MALIGNANT [None]
